FAERS Safety Report 9981311 (Version 1)
Quarter: 2014Q1

REPORT INFORMATION
  Report Type: Spontaneous
  Country: US (occurrence: None)
  Receive Date: 20140305
  Receipt Date: 20140305
  Transmission Date: 20141002
  Serious: Yes (Hospitalization)
  Sender: FDA-Public Use
  Company Number: AUR-APL-2014-02124

PATIENT
  Sex: 0

DRUGS (3)
  1. DONEPEZIL (DONEPEZIL) [Suspect]
     Indication: PRODUCT USED FOR UNKNOWN INDICATION
  2. LISINOPRIL (LISINOPRIL) [Concomitant]
  3. METFORMIN (METFORMIN) [Concomitant]

REACTIONS (4)
  - Syncope [None]
  - Dizziness [None]
  - Bradycardia [None]
  - Atrial fibrillation [None]
